FAERS Safety Report 5423308-X (Version None)
Quarter: 2007Q3

REPORT INFORMATION
  Report Type: 
  Country: None (occurrence: None)
  Receive Date: 20070823
  Receipt Date: 20070815
  Transmission Date: 20080115
  Serious: Yes (Hospitalization)
  Sender: FDA-Public Use
  Company Number: PHEH2007US09648

PATIENT
  Age: 58 Year
  Sex: Female
  Weight: 81.632 kg

DRUGS (5)
  1. LOTREL [Suspect]
     Indication: HYPERTENSION
     Dosage: 10/20 MG, QD
     Route: 048
     Dates: start: 20061221, end: 20070210
  2. TOPROL-XL [Concomitant]
     Dosage: 25 UNK, QD
     Route: 048
  3. ZOCOR [Concomitant]
     Dosage: 40 UNK, QD
     Route: 048
  4. PRILOSEC [Concomitant]
     Dosage: 20 UNK, QD
     Route: 048
  5. IMITREX [Concomitant]
     Dosage: 50 UNK, QD
     Route: 048

REACTIONS (1)
  - ARRHYTHMIA [None]
